FAERS Safety Report 20895105 (Version 1)
Quarter: 2022Q2

REPORT INFORMATION
  Report Type: Spontaneous
  Country: US (occurrence: US)
  Receive Date: 20220531
  Receipt Date: 20220531
  Transmission Date: 20220721
  Serious: Yes (Other)
  Sender: FDA-Public Use
  Company Number: US-drreddys-LIT/USA/22/0150598

PATIENT
  Age: 12 Month
  Sex: Male

DRUGS (8)
  1. DOXORUBICIN HYDROCHLORIDE [Suspect]
     Active Substance: DOXORUBICIN HYDROCHLORIDE
     Indication: Clear cell sarcoma of the kidney
  2. CYCLOPHOSPHAMIDE [Suspect]
     Active Substance: CYCLOPHOSPHAMIDE
     Indication: Clear cell sarcoma of the kidney
  3. ETOPOSIDE [Suspect]
     Active Substance: ETOPOSIDE
     Indication: Clear cell sarcoma of the kidney
  4. VINCRISTINE [Suspect]
     Active Substance: VINCRISTINE
     Indication: Clear cell sarcoma of the kidney
  5. IFOSFAMIDE [Suspect]
     Active Substance: IFOSFAMIDE
     Indication: Clear cell sarcoma of the kidney
  6. CARBOPLATIN [Suspect]
     Active Substance: CARBOPLATIN
     Indication: Clear cell sarcoma of the kidney
  7. IRINOTECAN [Suspect]
     Active Substance: IRINOTECAN
     Indication: Clear cell sarcoma of the kidney
  8. IRINOTECAN [Suspect]
     Active Substance: IRINOTECAN
     Dosage: DECREASED TO

REACTIONS (7)
  - Carnitine deficiency [Recovered/Resolved]
  - Pneumatosis intestinalis [Unknown]
  - Feeding disorder [Unknown]
  - Hypogammaglobulinaemia [Unknown]
  - Food protein-induced enterocolitis syndrome [Unknown]
  - Speech disorder developmental [Unknown]
  - Selective eating disorder [Unknown]
